FAERS Safety Report 4923522-3 (Version None)
Quarter: 2006Q1

REPORT INFORMATION
  Report Type: 
  Country: None (occurrence: None)
  Receive Date: 20060227
  Receipt Date: 20060215
  Transmission Date: 20060701
  Serious: Yes (Other)
  Sender: FDA-Public Use
  Company Number: 2006AC00295

PATIENT
  Age: 47 Year
  Sex: Male

DRUGS (6)
  1. CAP ELAVIL [Suspect]
     Indication: MYALGIA
     Route: 048
     Dates: start: 20050201, end: 20050501
  2. CAP ELAVIL [Suspect]
     Indication: MYOSITIS
     Route: 048
     Dates: start: 20050201, end: 20050501
  3. CAP ELAVIL [Suspect]
     Route: 048
     Dates: start: 20050501, end: 20051202
  4. CAP ELAVIL [Suspect]
     Route: 048
     Dates: start: 20050501, end: 20051202
  5. IBUPROFEN [Concomitant]
     Indication: MYALGIA
     Dates: start: 20050201
  6. IBUPROFEN [Concomitant]
     Indication: MYOSITIS
     Dates: start: 20050201

REACTIONS (2)
  - DERMATITIS [None]
  - EOSINOPHIL COUNT INCREASED [None]
